FAERS Safety Report 7311547-2 (Version None)
Quarter: 2011Q1

REPORT INFORMATION
  Report Type: 
  Country: None (occurrence: None)
  Receive Date: 20110224
  Receipt Date: 20110218
  Transmission Date: 20110831
  Serious: Yes (Other)
  Sender: FDA-Public Use
  Company Number: JP-PFIZER INC-2011036958

PATIENT
  Age: 64 Year
  Sex: Male

DRUGS (3)
  1. RIVOTRIL [Concomitant]
     Dosage: 0.5 MG, 2X/DAY
     Route: 048
  2. METHYCOBAL [Concomitant]
     Dosage: 500 UG, 3X/DAY
     Route: 048
  3. LYRICA [Suspect]
     Dosage: 225 MG/DAY
     Route: 048

REACTIONS (3)
  - VISION BLURRED [None]
  - GLAUCOMA [None]
  - INTRAOCULAR PRESSURE INCREASED [None]
